FAERS Safety Report 9697513 (Version 1)
Quarter: 2013Q4

REPORT INFORMATION
  Report Type: Spontaneous
  Country: NO (occurrence: NO)
  Receive Date: 20131120
  Receipt Date: 20131120
  Transmission Date: 20140711
  Serious: Yes (Hospitalization)
  Sender: FDA-Public Use
  Company Number: NO-BAYER-2013-137671

PATIENT
  Age: 50 Year
  Sex: Male

DRUGS (7)
  1. CIPROFLOXACIN [Suspect]
     Indication: INFECTION
     Dosage: 500 MG, BID
     Route: 048
  2. VALLERGAN [Concomitant]
     Dosage: 10 MG, 5ID
     Route: 048
  3. BISOPROLOL [Concomitant]
     Route: 048
  4. MICARDISPLUS [Concomitant]
     Dosage: 80 MG, QD
     Route: 048
  5. FENEMAL [Concomitant]
     Route: 048
  6. FLAGYL [Concomitant]
     Dosage: 400 MG, TID
  7. NEXIUM [Concomitant]
     Route: 048

REACTIONS (5)
  - Pruritus generalised [Unknown]
  - Dermatitis exfoliative [Unknown]
  - Oedema peripheral [Unknown]
  - Skin exfoliation [Unknown]
  - Rash generalised [Unknown]
